FAERS Safety Report 4949546-8 (Version None)
Quarter: 2006Q1

REPORT INFORMATION
  Report Type: 
  Country: None (occurrence: None)
  Receive Date: 20060316
  Receipt Date: 20060307
  Transmission Date: 20060701
  Serious: Yes (Other)
  Sender: FDA-Public Use
  Company Number: 2006032332

PATIENT
  Age: 7 Year
  Sex: Female
  Weight: 33.1126 kg

DRUGS (2)
  1. EMETROL (GLUCOSE, FRUCTOSE, PHOSPHORIC ACID) [Suspect]
     Indication: STOMACH DISCOMFORT
     Dosage: 1.5 TSP ONCE, ORAL
     Route: 048
     Dates: start: 20060225, end: 20060225
  2. INSULIN (INSULIN) [Concomitant]

REACTIONS (2)
  - CONVULSION [None]
  - VOMITING [None]
